FAERS Safety Report 23722126 (Version 1)
Quarter: 2024Q2

REPORT INFORMATION
  Report Type: Spontaneous
  Country: US (occurrence: None)
  Receive Date: 20240408
  Receipt Date: 20240408
  Transmission Date: 20240716
  Serious: Yes (Disabling)
  Sender: FDA-Public Use
  Company Number: None

PATIENT
  Age: 42 Year
  Sex: Female

DRUGS (1)
  1. ALPRAZOLAM [Suspect]
     Active Substance: ALPRAZOLAM
     Dosage: FREQUENCY : 4 TIMES A DAY;?

REACTIONS (26)
  - Hypoaesthesia oral [None]
  - Hypoaesthesia [None]
  - Choking sensation [None]
  - Ageusia [None]
  - Decreased appetite [None]
  - Headache [None]
  - Photophobia [None]
  - Tinnitus [None]
  - Hypoacusis [None]
  - Insomnia [None]
  - Mental impairment [None]
  - Suicidal ideation [None]
  - Anxiety [None]
  - Panic attack [None]
  - Body temperature increased [None]
  - Hyperhidrosis [None]
  - Hypoaesthesia [None]
  - Feeling cold [None]
  - Pain [None]
  - Dyspnoea [None]
  - Intentional self-injury [None]
  - Tremor [None]
  - Dissociation [None]
  - Near death experience [None]
  - Bedridden [None]
  - Hypertensive crisis [None]
